FAERS Safety Report 14779865 (Version 7)
Quarter: 2019Q4

REPORT INFORMATION
  Report Type: Spontaneous
  Country: JP (occurrence: JP)
  Receive Date: 20180419
  Receipt Date: 20191201
  Transmission Date: 20200122
  Serious: Yes (Death, Life-Threatening, Hospitalization, Other)
  Sender: FDA-Public Use
  Company Number: JP-UNITED THERAPEUTICS-UNT-2015-014348

PATIENT
  Age: 62 Year
  Sex: Female
  Weight: 46 kg

DRUGS (28)
  1. NEXIUM SANDOZ [Concomitant]
     Indication: CHRONIC GASTRITIS
     Dosage: UNK
     Route: 048
  2. FERROMIA [Concomitant]
     Active Substance: SODIUM FERROUS CITRATE
     Indication: PRODUCT USED FOR UNKNOWN INDICATION
     Dosage: UNK
     Route: 048
     Dates: start: 20161201
  3. REMODULIN [Suspect]
     Active Substance: TREPROSTINIL
     Dosage: 0.104 ?G/KG, CONTINUING
     Route: 041
  4. SLOW-K [Concomitant]
     Active Substance: POTASSIUM CHLORIDE
     Indication: HYPOKALAEMIA
     Dosage: UNK
     Route: 048
  5. FOSAMAC [Concomitant]
     Active Substance: ALENDRONATE SODIUM
     Indication: OSTEOPOROSIS
     Dosage: UNK
     Route: 048
  6. LUPRAC [Concomitant]
     Active Substance: TORSEMIDE
     Indication: RIGHT VENTRICULAR FAILURE
     Dosage: UNK
     Route: 048
  7. REVATIO [Concomitant]
     Active Substance: SILDENAFIL CITRATE
     Indication: PULMONARY ARTERIAL HYPERTENSION
     Dosage: UNK
     Route: 048
     Dates: start: 201006
  8. REVATIO [Concomitant]
     Active Substance: SILDENAFIL CITRATE
     Indication: MIXED CONNECTIVE TISSUE DISEASE
  9. HIRUDOID [Concomitant]
     Active Substance: GLYCOSAMINOGLYCANS
     Indication: ASTEATOSIS
     Dosage: UNK
     Route: 061
  10. PREDNISOLONE. [Concomitant]
     Active Substance: PREDNISOLONE
     Indication: PULMONARY ARTERIAL HYPERTENSION
     Dosage: UNK
     Route: 048
  11. MERCAZOLE [Concomitant]
     Active Substance: CARBIMAZOLE
     Indication: HYPERTHYROIDISM
     Dosage: UNK
     Route: 048
  12. MIYA-BM [Concomitant]
     Active Substance: CLOSTRIDIUM BUTYRICUM SPORES STRAIN M-55
     Indication: PRODUCT USED FOR UNKNOWN INDICATION
     Dosage: UNK
     Route: 048
     Dates: start: 20161018
  13. CALONAL [Concomitant]
     Active Substance: ACETAMINOPHEN
     Indication: BACK PAIN
     Dosage: UNK
     Route: 048
     Dates: end: 20170805
  14. VASOLAN [Concomitant]
     Indication: ANGINA PECTORIS
     Dosage: UNK
     Route: 048
  15. REMODULIN [Suspect]
     Active Substance: TREPROSTINIL
     Indication: PULMONARY ARTERIAL HYPERTENSION
     Dosage: UNK, CONTINUING
     Route: 041
     Dates: start: 20150623, end: 20190306
  16. KIPRES [Concomitant]
     Active Substance: MONTELUKAST SODIUM
     Indication: PRODUCT USED FOR UNKNOWN INDICATION
     Dosage: UNK
     Route: 048
     Dates: start: 20170528
  17. LASIX [Concomitant]
     Active Substance: FUROSEMIDE
     Indication: MIXED CONNECTIVE TISSUE DISEASE
  18. ALDACTONE A [Concomitant]
     Active Substance: SPIRONOLACTONE
     Indication: RIGHT VENTRICULAR FAILURE
     Dosage: UNK
     Route: 048
  19. HUSTAZOL [Concomitant]
     Indication: ASTHMA
     Dosage: UNK
     Route: 048
     Dates: end: 201509
  20. PREDNISOLONE. [Concomitant]
     Active Substance: PREDNISOLONE
     Indication: MIXED CONNECTIVE TISSUE DISEASE
  21. LASIX [Concomitant]
     Active Substance: FUROSEMIDE
     Indication: PULMONARY ARTERIAL HYPERTENSION
     Dosage: UNK
     Route: 048
     Dates: start: 20161201
  22. REMODULIN [Suspect]
     Active Substance: TREPROSTINIL
     Indication: MIXED CONNECTIVE TISSUE DISEASE
     Dosage: 0.11009 ?G/KG, CONTINUING
     Route: 041
     Dates: start: 20150722
  23. OPSUMIT [Concomitant]
     Active Substance: MACITENTAN
     Indication: PULMONARY ARTERIAL HYPERTENSION
     Dosage: UNK
     Route: 048
     Dates: start: 201506
  24. OPSUMIT [Concomitant]
     Active Substance: MACITENTAN
     Indication: MIXED CONNECTIVE TISSUE DISEASE
  25. ZYLORIC [Concomitant]
     Active Substance: ALLOPURINOL
     Indication: HYPERURICAEMIA
     Dosage: UNK
     Route: 048
  26. BONZOL [Concomitant]
     Active Substance: LANSOPRAZOLE
     Indication: BREAST DISORDER
     Dosage: UNK
     Route: 048
  27. LOPEMIN [Concomitant]
     Indication: DIARRHOEA
     Dosage: UNK
     Route: 048
     Dates: end: 20150630
  28. RELVAR [Concomitant]
     Active Substance: FLUTICASONE FUROATE\VILANTEROL TRIFENATATE
     Indication: PRODUCT USED FOR UNKNOWN INDICATION
     Dosage: UNK
     Dates: start: 20171101

REACTIONS (11)
  - Uterine haemorrhage [Recovered/Resolved]
  - Shock [Unknown]
  - Device related infection [Unknown]
  - Epistaxis [Not Recovered/Not Resolved]
  - Thrombocytopenia [Unknown]
  - Melaena [Recovered/Resolved]
  - Cardiac failure [Recovered/Resolved]
  - Oral pain [Fatal]
  - Tongue neoplasm malignant stage unspecified [Fatal]
  - Haemoptysis [Recovered/Resolved]
  - Cardiac failure [Unknown]

NARRATIVE: CASE EVENT DATE: 2015
